FAERS Safety Report 7726890-2 (Version None)
Quarter: 2011Q3

REPORT INFORMATION
  Report Type: 
  Country: None (occurrence: None)
  Receive Date: 20110902
  Receipt Date: 20110826
  Transmission Date: 20111222
  Serious: Yes (Hospitalization)
  Sender: FDA-Public Use
  Company Number: US-MERCK-1010USA01164

PATIENT
  Age: 92 Year
  Sex: Female

DRUGS (10)
  1. FOSAMAX [Suspect]
     Route: 048
     Dates: start: 20010308
  2. ALENDRONATE SODIUM [Suspect]
     Route: 048
     Dates: start: 20080802, end: 20090313
  3. ACTONEL [Suspect]
     Indication: OSTEOPOROSIS
     Route: 048
     Dates: start: 20050813, end: 20051101
  4. ACTONEL [Suspect]
     Route: 048
     Dates: start: 20031111, end: 20041101
  5. FOSAMAX [Suspect]
     Route: 048
     Dates: start: 20001010, end: 20010101
  6. FOSAMAX [Suspect]
     Route: 048
     Dates: start: 20050713, end: 20100111
  7. EVISTA [Suspect]
     Indication: OSTEOPOROSIS
     Route: 048
     Dates: start: 20051027
  8. ALENDRONATE SODIUM [Suspect]
     Indication: OSTEOPOROSIS
     Route: 048
     Dates: start: 20080607, end: 20080801
  9. FOSAMAX [Suspect]
     Indication: OSTEOPOROSIS
     Route: 048
     Dates: start: 20060421, end: 20080119
  10. ACTONEL [Suspect]
     Route: 048
     Dates: start: 20060412, end: 20060420

REACTIONS (30)
  - FEMUR FRACTURE [None]
  - SINUS CONGESTION [None]
  - ANAEMIA [None]
  - BLOOD UREA INCREASED [None]
  - CAROTID ARTERY OCCLUSION [None]
  - VAGINAL PROLAPSE [None]
  - IRON DEFICIENCY ANAEMIA [None]
  - OVERDOSE [None]
  - FLATULENCE [None]
  - PNEUMONIA [None]
  - CYSTOCELE [None]
  - DYSPHAGIA [None]
  - MYELODYSPLASTIC SYNDROME [None]
  - GLAUCOMA [None]
  - INGROWING NAIL [None]
  - GASTROOESOPHAGEAL REFLUX DISEASE [None]
  - BLOOD PRESSURE [None]
  - TOOTH FRACTURE [None]
  - PAIN [None]
  - VITAMIN D DEFICIENCY [None]
  - BLOOD POTASSIUM INCREASED [None]
  - SINUS OPERATION [None]
  - CHRONIC OBSTRUCTIVE PULMONARY DISEASE [None]
  - NEPHROGENIC ANAEMIA [None]
  - DRUG INTOLERANCE [None]
  - CAROTID ARTERY STENOSIS [None]
  - INTERVERTEBRAL DISC PROTRUSION [None]
  - INGUINAL HERNIA [None]
  - LOW TURNOVER OSTEOPATHY [None]
  - JOINT INSTABILITY [None]
